FAERS Safety Report 9988463 (Version 1)
Quarter: 2014Q1

REPORT INFORMATION
  Report Type: Spontaneous
  Country: US (occurrence: US)
  Receive Date: 20140310
  Receipt Date: 20140310
  Transmission Date: 20141002
  Serious: No
  Sender: FDA-Public Use
  Company Number: US-BIOGENIDEC-2014BI016557

PATIENT
  Age: 61 Year
  Sex: Male

DRUGS (3)
  1. TECFIDERA [Suspect]
     Indication: MULTIPLE SCLEROSIS
     Route: 048
     Dates: start: 20130604, end: 20140203
  2. AMLODIPINE BESYLATE [Concomitant]
  3. PROPRANOLOL HCI ER [Concomitant]

REACTIONS (3)
  - Back pain [Unknown]
  - Type 2 diabetes mellitus [Unknown]
  - Abdominal pain [Unknown]
